FAERS Safety Report 11157001 (Version 3)
Quarter: 2015Q2

REPORT INFORMATION
  Report Type: Report from Study
  Country: US (occurrence: US)
  Receive Date: 20150602
  Receipt Date: 20150612
  Transmission Date: 20150821
  Serious: Yes (Hospitalization)
  Sender: FDA-Public Use
  Company Number: US-ABBVIE-15P-163-1399579-00

PATIENT
  Age: 43 Year
  Sex: Female
  Weight: 85.81 kg

DRUGS (5)
  1. HUMIRA [Suspect]
     Active Substance: ADALIMUMAB
     Dosage: LOADING DOSE
     Route: 058
     Dates: start: 20150511, end: 20150511
  2. HUMIRA [Suspect]
     Active Substance: ADALIMUMAB
     Indication: CROHN^S DISEASE
     Dosage: ONE SHOT
     Route: 058
  3. REMICADE [Suspect]
     Active Substance: INFLIXIMAB
     Indication: CROHN^S DISEASE
     Route: 065
     Dates: start: 2001
  4. REMICADE [Suspect]
     Active Substance: INFLIXIMAB
     Route: 065
     Dates: end: 201503
  5. HUMIRA [Suspect]
     Active Substance: ADALIMUMAB
     Route: 058
     Dates: start: 20150525

REACTIONS (7)
  - Wrong technique in drug usage process [Unknown]
  - Malaise [Unknown]
  - Drug specific antibody present [Unknown]
  - Bedridden [Unknown]
  - Full blood count decreased [Recovering/Resolving]
  - Wound haemorrhage [Recovering/Resolving]
  - Psoriasis [Recovering/Resolving]

NARRATIVE: CASE EVENT DATE: 20141201
